FAERS Safety Report 19227873 (Version 1)
Quarter: 2021Q2

REPORT INFORMATION
  Report Type: Spontaneous
  Country: US (occurrence: US)
  Receive Date: 20210506
  Receipt Date: 20210506
  Transmission Date: 20210717
  Serious: No
  Sender: FDA-Public Use
  Company Number: US-ROCHE-2708389

PATIENT
  Sex: Female

DRUGS (1)
  1. ESBRIET [Suspect]
     Active Substance: PIRFENIDONE
     Indication: IDIOPATHIC PULMONARY FIBROSIS
     Dosage: TAKE 1 CAPSULE BY MOUTH THREE TIMES PER DAY AT THE SAME TIME EACH DAY
     Route: 048

REACTIONS (2)
  - Mucosal hypertrophy [Not Recovered/Not Resolved]
  - Weight increased [Not Recovered/Not Resolved]
